FAERS Safety Report 7473237 (Version 2)
Quarter: 2014Q2

REPORT INFORMATION
  Report Type: Spontaneous
  Country: US (occurrence: US)
  Receive Date: 20100714
  Receipt Date: 20140521
  Transmission Date: 20141212
  Serious: Yes (Hospitalization, Other)
  Sender: FDA-Public Use
  Company Number: US-PFIZER INC-2010083926

PATIENT
  Age: 89 Year
  Sex: Male

DRUGS (4)
  1. AZITHROMYCIN [Suspect]
     Indication: PNEUMONIA ESCHERICHIA
     Dosage: UNK
  2. METRONIDAZOLE [Suspect]
  3. PIPERACILLIN/TAZOBACTAM [Suspect]
     Indication: PNEUMONIA ESCHERICHIA
     Dosage: UNK
  4. VANCOMYCIN [Suspect]

REACTIONS (7)
  - Acute generalised exanthematous pustulosis [Recovering/Resolving]
  - Oedema peripheral [Recovered/Resolved]
  - Blister [Recovering/Resolving]
  - Abdominal pain [None]
  - Leukocytosis [None]
  - Rash morbilliform [None]
  - Blood bilirubin increased [None]
